FAERS Safety Report 9040223 (Version 1)
Quarter: 2013Q1

REPORT INFORMATION
  Report Type: Report from Study
  Country: US (occurrence: US)
  Receive Date: 20130129
  Receipt Date: 20130129
  Transmission Date: 20140127
  Serious: Yes (Hospitalization)
  Sender: FDA-Public Use
  Company Number: US-ABBOTT-11P-163-0863203-00

PATIENT
  Sex: Female

DRUGS (5)
  1. HUMIRA 40 MG/0.8 ML PEN [Suspect]
     Indication: PSORIATIC ARTHROPATHY
     Dates: start: 20080203
  2. METHOTREXATE [Concomitant]
     Indication: PSORIATIC ARTHROPATHY
  3. METHOTREXATE [Concomitant]
     Indication: RHEUMATOID ARTHRITIS
  4. XANAX [Concomitant]
     Indication: INSOMNIA
  5. PROSOM [Concomitant]
     Indication: INSOMNIA

REACTIONS (3)
  - Atrial fibrillation [Recovered/Resolved]
  - Gastritis [Unknown]
  - Injection site pain [Not Recovered/Not Resolved]
